FAERS Safety Report 9408363 (Version 1)
Quarter: 2013Q3

REPORT INFORMATION
  Report Type: Spontaneous
  Country: GB (occurrence: None)
  Receive Date: 20130716
  Receipt Date: 20130716
  Transmission Date: 20140515
  Serious: Yes (Other)
  Sender: FDA-Public Use
  Company Number: GER/UKI/13/0031695

PATIENT
  Age: 27 Year
  Sex: Male

DRUGS (6)
  1. LEVETIRACETAM (LEVETIRACETAM) [Suspect]
     Indication: PRODUCT USED FOR UNKNOWN INDICATION
  2. CLOBAZAM (CLOBAZAM) [Concomitant]
  3. DEXAMETHASONE (DEXAMETHASONE) [Concomitant]
  4. PHENYTOIN (PHENYTOIN) [Concomitant]
  5. SODIUM VALPROATE (VALPROATE SODIUM) [Concomitant]
  6. TEMOZOLOMIDE [Concomitant]

REACTIONS (1)
  - Epilepsy [None]
